FAERS Safety Report 10139511 (Version 1)
Quarter: 2014Q2

REPORT INFORMATION
  Report Type: Report from Study
  Country: TH (occurrence: TH)
  Receive Date: 20140429
  Receipt Date: 20140429
  Transmission Date: 20141212
  Serious: Yes (Hospitalization, Other)
  Sender: FDA-Public Use
  Company Number: TH-ASTELLAS-2014US003958

PATIENT
  Sex: Female
  Weight: 54 kg

DRUGS (1)
  1. TACROLIMUS [Suspect]
     Indication: RENAL TRANSPLANT
     Dosage: 5 MG FOLLOW BY RANGE OF 6-9 MG, UNKNOWN FREQ.
     Route: 048
     Dates: start: 20040820

REACTIONS (3)
  - Diabetic retinopathy [Not Recovered/Not Resolved]
  - Blood creatinine increased [Not Recovered/Not Resolved]
  - Chest pain [Unknown]
